FAERS Safety Report 23388264 (Version 2)
Quarter: 2024Q1

REPORT INFORMATION
  Report Type: Report from Study
  Country: IT (occurrence: IT)
  Receive Date: 20240110
  Receipt Date: 20240224
  Transmission Date: 20240409
  Serious: Yes (Other)
  Sender: FDA-Public Use
  Company Number: None

PATIENT
  Age: 10 Month
  Sex: Female
  Weight: 9 kg

DRUGS (4)
  1. VINCRISTINE [Suspect]
     Active Substance: VINCRISTINE
     Indication: Atypical teratoid/rhabdoid tumour of CNS
     Dosage: 0.45 MG/DAY, VINCRISTINA TEVA ITALY
     Route: 042
     Dates: start: 20231025, end: 20231025
  2. CYCLOPHOSPHAMIDE [Suspect]
     Active Substance: CYCLOPHOSPHAMIDE
     Indication: Atypical teratoid/rhabdoid tumour of CNS
     Dosage: 450 MG/DAY
     Route: 042
     Dates: start: 20231025, end: 20231025
  3. CORTISONE ACETATE [Concomitant]
     Active Substance: CORTISONE ACETATE
     Indication: Hormone replacement therapy
     Dosage: 5 MG (1 TABLET DILUTED IN 12.5 ML OF WATER, TAKE 2.5 ML) X 2 VV/DAY
     Route: 048
     Dates: start: 20231006
  4. COSMEGEN [Suspect]
     Active Substance: DACTINOMYCIN
     Indication: Atypical teratoid/rhabdoid tumour of CNS
     Dosage: 0.15 MG
     Route: 042
     Dates: start: 20231025, end: 20231026

REACTIONS (3)
  - Anaemia [Recovered/Resolved]
  - Neutropenia [Unknown]
  - Leukopenia [Recovered/Resolved]

NARRATIVE: CASE EVENT DATE: 20231028
